FAERS Safety Report 10838527 (Version 2)
Quarter: 2015Q1

REPORT INFORMATION
  Report Type: Spontaneous
  Country: US (occurrence: None)
  Receive Date: 20150218
  Receipt Date: 20150303
  Transmission Date: 20150721
  Serious: Yes (Hospitalization, Other)
  Sender: FDA-Public Use
  Company Number: 2015US011032

PATIENT
  Age: 56 Year
  Sex: Female
  Weight: 80.5 kg

DRUGS (5)
  1. ATIVAN [Concomitant]
     Active Substance: LORAZEPAM
  2. MAGNESIUM (MAGNESIUM) [Suspect]
     Active Substance: MAGNESIUM
     Indication: HYPOMAGNESAEMIA
     Dosage: UNK, INTRAVENOUS?
     Route: 042
     Dates: start: 20150130
  3. ALOXI [Suspect]
     Active Substance: PALONOSETRON HYDROCHLORIDE
     Indication: PROPHYLAXIS OF NAUSEA AND VOMITING
     Route: 042
     Dates: start: 20150130, end: 20150130
  4. DECADRON [Concomitant]
     Active Substance: DEXAMETHASONE
  5. EMEND [Suspect]
     Active Substance: APREPITANT
     Indication: PROPHYLAXIS OF NAUSEA AND VOMITING
     Route: 042
     Dates: start: 20150130, end: 20150130

REACTIONS (21)
  - Tachycardia [None]
  - Pulse abnormal [None]
  - Lethargy [None]
  - Blood calcium decreased [None]
  - Loss of consciousness [None]
  - Dyspepsia [None]
  - Blood creatinine increased [None]
  - Drug interaction [None]
  - Diarrhoea [None]
  - Electrocardiogram ST segment elevation [None]
  - Platelet count decreased [None]
  - Blood magnesium decreased [None]
  - Hypotension [None]
  - Flushing [None]
  - Chest pain [None]
  - Unresponsive to stimuli [None]
  - Heart rate increased [None]
  - Blood urea increased [None]
  - Blood pressure decreased [None]
  - Urinary incontinence [None]
  - Blood glucose increased [None]

NARRATIVE: CASE EVENT DATE: 20150130
